FAERS Safety Report 6411631-1 (Version None)
Quarter: 2009Q4

REPORT INFORMATION
  Report Type: 
  Country: None (occurrence: None)
  Receive Date: 20091020
  Receipt Date: 20091007
  Transmission Date: 20100525
  Serious: Yes (Hospitalization)
  Sender: FDA-Public Use
  Company Number: 2009AC000092

PATIENT
  Age: 56 Year
  Sex: Female
  Weight: 117.9352 kg

DRUGS (33)
  1. DIGOXIN [Suspect]
     Dosage: 0.25 MG; QD; PO
     Route: 048
     Dates: start: 20070201
  2. NORVASC [Concomitant]
  3. LEVOXYL [Concomitant]
  4. METFORMIN HCL [Concomitant]
  5. PLAVIX [Concomitant]
  6. CORGARD [Concomitant]
  7. LORTAB [Concomitant]
  8. FLEXERIL [Concomitant]
  9. EQUALINE [Concomitant]
  10. LIPITOR [Concomitant]
  11. DILANTIN [Concomitant]
  12. LEVOTHYROXINE SODIUM [Concomitant]
  13. HYDROCODONE [Concomitant]
  14. LISINOPRIL [Concomitant]
  15. FUROSEMIDE [Concomitant]
  16. ASPIRIN [Concomitant]
  17. ZETIA [Concomitant]
  18. NITROGLYCERIN [Concomitant]
  19. PROZAC [Concomitant]
  20. NOVOLOG [Concomitant]
  21. POTASSIUM CHLORIDE [Concomitant]
  22. DIXEPIN [Concomitant]
  23. NADOLOL [Concomitant]
  24. TRIGLIDE [Concomitant]
  25. NOVOLIN [Concomitant]
  26. CARDIZEM [Concomitant]
  27. NEXIUM [Concomitant]
  28. LOVENOX [Concomitant]
  29. GLUCOPHAGE [Concomitant]
  30. TEGRETOL [Concomitant]
  31. LEVOTHROID [Concomitant]
  32. GLUCOPHAGE [Concomitant]
  33. TEGRETOL [Concomitant]

REACTIONS (20)
  - ACUTE CORONARY SYNDROME [None]
  - ATELECTASIS [None]
  - CARDIAC FAILURE CONGESTIVE [None]
  - CHEST DISCOMFORT [None]
  - CORONARY ARTERY DISEASE [None]
  - CORONARY ARTERY STENOSIS [None]
  - COSTOCHONDRITIS [None]
  - DYSPEPSIA [None]
  - ECONOMIC PROBLEM [None]
  - FACIAL PAIN [None]
  - FEELING ABNORMAL [None]
  - HEPATIC STEATOSIS [None]
  - MULTIPLE INJURIES [None]
  - MUSCULOSKELETAL PAIN [None]
  - MYOCARDIAL INFARCTION [None]
  - NEURALGIA [None]
  - OXYGEN SATURATION DECREASED [None]
  - SPLENOMEGALY [None]
  - SYNCOPE [None]
  - TRANSIENT ISCHAEMIC ATTACK [None]
